FAERS Safety Report 17550476 (Version 1)
Quarter: 2020Q1

REPORT INFORMATION
  Report Type: Spontaneous
  Country: GB (occurrence: GB)
  Receive Date: 20200317
  Receipt Date: 20200317
  Transmission Date: 20200409
  Serious: Yes (Other)
  Sender: FDA-Public Use
  Company Number: GB-FERRINGPH-2020FE01627

PATIENT
  Age: 8 Year
  Sex: Female
  Weight: 30 kg

DRUGS (2)
  1. OVEX [MEBENDAZOLE] [Concomitant]
  2. DESMOPRESSIN [Suspect]
     Active Substance: DESMOPRESSIN
     Indication: PRODUCT USED FOR UNKNOWN INDICATION
     Route: 048
     Dates: start: 20200115, end: 20200122

REACTIONS (6)
  - Dermatitis allergic [Recovering/Resolving]
  - Irritability [Recovered/Resolved]
  - Lip swelling [Recovered/Resolved]
  - Nightmare [Recovered/Resolved]
  - Hallucination, visual [Recovered/Resolved]
  - Fatigue [Recovered/Resolved]

NARRATIVE: CASE EVENT DATE: 20200116
